FAERS Safety Report 7800836-0 (Version None)
Quarter: 2011Q4

REPORT INFORMATION
  Report Type: 
  Country: None (occurrence: None)
  Receive Date: 20111006
  Receipt Date: 20110927
  Transmission Date: 20120403
  Serious: Yes (Death, Hospitalization, Other)
  Sender: FDA-Public Use
  Company Number: GR-BAXTER-2011BH031441

PATIENT

DRUGS (3)
  1. EPOGEN [Concomitant]
     Indication: PRODUCT USED FOR UNKNOWN INDICATION
     Route: 065
  2. EXTRANEAL [Suspect]
     Indication: CARDIAC FAILURE CONGESTIVE
     Route: 033
  3. EXTRANEAL [Suspect]
     Indication: OFF LABEL USE
     Route: 033

REACTIONS (2)
  - SEPSIS [None]
  - INFECTIOUS PERITONITIS [None]
